FAERS Safety Report 6147183-3 (Version None)
Quarter: 2009Q2

REPORT INFORMATION
  Report Type: 
  Country: None (occurrence: None)
  Receive Date: 20090403
  Receipt Date: 20090323
  Transmission Date: 20091009
  Serious: Yes (Hospitalization, Other)
  Sender: FDA-Public Use
  Company Number: 2009AP001204

PATIENT
  Age: 51 Year
  Sex: Male
  Weight: 87 kg

DRUGS (14)
  1. ONDANSETRON [Suspect]
     Dosage: 4 MG
  2. ATORVASTATIN [Concomitant]
  3. MULTI-VITAMINS [Concomitant]
  4. GLUCOSAMINE [Concomitant]
  5. CHONDROITIN SULFATE [Concomitant]
  6. SODIUM [Concomitant]
  7. ACETYLSALICYLIC ACID SRT [Concomitant]
  8. GLYCOPYRROLATE INJECTION, USP [Concomitant]
  9. CEFAZOLIN AND DEXTROSE [Concomitant]
  10. ROCURONIUM BROMIDE [Concomitant]
  11. SOFLURANE [Concomitant]
  12. PROPOFOL [Concomitant]
  13. FENTANYL [Concomitant]
  14. MIDAZOLAM [Concomitant]

REACTIONS (12)
  - ARTERIOSPASM CORONARY [None]
  - ATRIAL FIBRILLATION [None]
  - BLOOD PRESSURE SYSTOLIC DECREASED [None]
  - CHEST PAIN [None]
  - CORONARY ARTERY STENOSIS [None]
  - ELECTROCARDIOGRAM ST SEGMENT ELEVATION [None]
  - HEART ALTERNATION [None]
  - HYPERHIDROSIS [None]
  - LEFT ATRIAL DILATATION [None]
  - LEFT VENTRICULAR HYPERTROPHY [None]
  - NAUSEA [None]
  - VOMITING [None]
